FAERS Safety Report 10463922 (Version 4)
Quarter: 2015Q1

REPORT INFORMATION
  Report Type: Spontaneous
  Country: US (occurrence: US)
  Receive Date: 20140919
  Receipt Date: 20150306
  Transmission Date: 20150720
  Serious: Yes (Hospitalization, Other)
  Sender: FDA-Public Use
  Company Number: US-PFIZER INC-2014257986

PATIENT
  Age: 66 Year
  Sex: Female
  Weight: 120 kg

DRUGS (8)
  1. ZANAFLEX [Suspect]
     Active Substance: TIZANIDINE HYDROCHLORIDE
     Dosage: UNK
  2. DOXYCYCLINE HYDROCHLORIDE [Concomitant]
     Active Substance: DOXYCYCLINE HYDROCHLORIDE
     Indication: BACTERIAL INFECTION
     Dosage: 100 MG, 2X/DAY
     Route: 048
     Dates: start: 20150102
  3. VENLAFAXINE HCL [Suspect]
     Active Substance: VENLAFAXINE HYDROCHLORIDE
     Indication: DEPRESSION
     Dosage: 150 MG, 2X/DAY
     Route: 048
  4. ATIVAN [Suspect]
     Active Substance: LORAZEPAM
     Indication: DEPRESSION
  5. ATIVAN [Suspect]
     Active Substance: LORAZEPAM
     Indication: ANXIETY
     Dosage: UNK
  6. BACITRACIN. [Suspect]
     Active Substance: BACITRACIN
     Dosage: UNK
  7. LYRICA [Suspect]
     Active Substance: PREGABALIN
     Indication: POLYNEUROPATHY
     Dosage: UNK
  8. MORPHINE SULFATE. [Suspect]
     Active Substance: MORPHINE SULFATE
     Dosage: UNK

REACTIONS (22)
  - Speech disorder [Unknown]
  - Pain [Not Recovered/Not Resolved]
  - Hypophagia [Unknown]
  - Anxiety [Not Recovered/Not Resolved]
  - Thirst [Unknown]
  - Insomnia [Unknown]
  - Psychomotor hyperactivity [Unknown]
  - Depression [Not Recovered/Not Resolved]
  - Retching [Unknown]
  - Arthropathy [Unknown]
  - Carbuncle [Unknown]
  - Overdose [Unknown]
  - Hypometabolism [Not Recovered/Not Resolved]
  - Hyperhidrosis [Not Recovered/Not Resolved]
  - Body height decreased [Unknown]
  - Femur fracture [Unknown]
  - Staphylococcal infection [Not Recovered/Not Resolved]
  - Suicidal ideation [Unknown]
  - Amnesia [Unknown]
  - Drug ineffective [Unknown]
  - Weight increased [Unknown]
  - Cyst [Unknown]

NARRATIVE: CASE EVENT DATE: 2000
